FAERS Safety Report 18677235 (Version 1)
Quarter: 2020Q4

REPORT INFORMATION
  Report Type: Spontaneous
  Country: IL (occurrence: IL)
  Receive Date: 20201229
  Receipt Date: 20201229
  Transmission Date: 20210114
  Serious: Yes (Other)
  Sender: FDA-Public Use
  Company Number: IL-EISAI MEDICAL RESEARCH-EC-2020-078464

PATIENT
  Sex: Female

DRUGS (3)
  1. LENVIMA [Suspect]
     Active Substance: LENVATINIB
     Route: 048
     Dates: start: 2020, end: 2020
  2. LENVIMA [Suspect]
     Active Substance: LENVATINIB
     Indication: ADENOID CYSTIC CARCINOMA OF SALIVARY GLAND
     Route: 048
     Dates: start: 2020, end: 2020
  3. LENVIMA [Suspect]
     Active Substance: LENVATINIB
     Route: 048
     Dates: start: 2020

REACTIONS (4)
  - Malignant neoplasm progression [Recovering/Resolving]
  - Pericarditis [Unknown]
  - Palpitations [Unknown]
  - Skin ulcer [Unknown]

NARRATIVE: CASE EVENT DATE: 2020
